FAERS Safety Report 18479783 (Version 3)
Quarter: 2020Q4

REPORT INFORMATION
  Report Type: Report from Study
  Country: US (occurrence: US)
  Receive Date: 20201109
  Receipt Date: 20201226
  Transmission Date: 20210114
  Serious: No
  Sender: FDA-Public Use
  Company Number: NVSC2020US299664

PATIENT
  Sex: Male

DRUGS (3)
  1. ENTRESTO [Suspect]
     Active Substance: SACUBITRIL\VALSARTAN
     Dosage: 100 MG, BID (2 24/26 MG)
     Route: 065
  2. CARVEDILOL. [Concomitant]
     Active Substance: CARVEDILOL
     Indication: PRODUCT USED FOR UNKNOWN INDICATION
     Dosage: UNK
     Route: 065
  3. ENTRESTO [Suspect]
     Active Substance: SACUBITRIL\VALSARTAN
     Indication: PRODUCT USED FOR UNKNOWN INDICATION
     Dosage: 50 MG, BID (1 24/26 MG)
     Route: 048
     Dates: start: 20201027

REACTIONS (7)
  - Incorrect dose administered [Recovering/Resolving]
  - Flatulence [Recovered/Resolved]
  - Diarrhoea [Recovering/Resolving]
  - Burning sensation [Recovering/Resolving]
  - Dehydration [Recovering/Resolving]
  - Peripheral swelling [Recovering/Resolving]
  - Hunger [Unknown]
